FAERS Safety Report 25681138 (Version 1)
Quarter: 2025Q3

REPORT INFORMATION
  Report Type: Spontaneous
  Country: CN (occurrence: CN)
  Receive Date: 20250814
  Receipt Date: 20250814
  Transmission Date: 20251021
  Serious: Yes (Other)
  Sender: JOHNSON AND JOHNSON
  Company Number: CN-JNJFOC-20250809992

PATIENT
  Age: 86 Year
  Sex: Male
  Weight: 60 kg

DRUGS (4)
  1. DARZALEX FASPRO [Suspect]
     Active Substance: DARATUMUMAB\HYALURONIDASE-FIHJ
     Indication: Plasma cell myeloma
     Dosage: ON DAY 1 (14-JUL-2025), 8 (22-JUL-2025), 15 (28-JUL-2025) AND 22 (04-AUG-2025)
     Route: 058
     Dates: start: 20250714, end: 20250804
  2. VELCADE [Suspect]
     Active Substance: BORTEZOMIB
     Indication: Plasma cell myeloma
     Dosage: ON DAY 1, 8, 15 AND 22
     Route: 058
     Dates: start: 20250714, end: 20250804
  3. DEXAMETHASONE SODIUM PHOSPHATE [Concomitant]
     Active Substance: DEXAMETHASONE SODIUM PHOSPHATE
     Indication: Plasma cell myeloma
     Route: 041
     Dates: start: 20250805, end: 20250805
  4. DEXAMETHASONE SODIUM PHOSPHATE [Concomitant]
     Active Substance: DEXAMETHASONE SODIUM PHOSPHATE
     Dosage: DAY 1, 2, 8, 9, 15, 16, 22 AND 23
     Route: 041
     Dates: start: 20250714, end: 20250804

REACTIONS (1)
  - Clostridium difficile infection [Recovering/Resolving]

NARRATIVE: CASE EVENT DATE: 20250730
